FAERS Safety Report 23004601 (Version 2)
Quarter: 2023Q4

REPORT INFORMATION
  Report Type: Report from Study
  Country: TW (occurrence: TW)
  Receive Date: 20230928
  Receipt Date: 20231003
  Transmission Date: 20240110
  Serious: Yes (Hospitalization)
  Sender: FDA-Public Use
  Company Number: TW-JNJFOC-20230551586

PATIENT
  Age: 45 Year
  Sex: Male

DRUGS (1)
  1. RYBREVANT [Suspect]
     Active Substance: AMIVANTAMAB-VMJW
     Indication: Product used for unknown indication
     Route: 065
     Dates: start: 20230428, end: 20230904

REACTIONS (4)
  - Metastases to central nervous system [Unknown]
  - Drug resistance [Unknown]
  - Condition aggravated [Unknown]
  - Skin disorder [Unknown]

NARRATIVE: CASE EVENT DATE: 20230501
